FAERS Safety Report 23815549 (Version 1)
Quarter: 2024Q2

REPORT INFORMATION
  Report Type: Spontaneous
  Country: US (occurrence: US)
  Receive Date: 20240503
  Receipt Date: 20240503
  Transmission Date: 20240716
  Serious: Yes (Other)
  Sender: FDA-Public Use
  Company Number: US-BAYER-2024A064149

PATIENT
  Age: 28 Year
  Sex: Male

DRUGS (6)
  1. ASTEPRO [Suspect]
     Active Substance: AZELASTINE HYDROCHLORIDE
     Indication: Sneezing
     Dosage: 1 DF
     Route: 045
     Dates: start: 20240428, end: 20240428
  2. BUPROPION [Concomitant]
     Active Substance: BUPROPION
     Indication: Prophylaxis
     Dosage: 300 MG, QD
     Route: 048
     Dates: start: 2012
  3. DICYCLOMINE [Concomitant]
     Active Substance: DICYCLOMINE HYDROCHLORIDE
     Indication: Prophylaxis
     Dosage: 20 MG, QD
     Route: 048
     Dates: start: 202311
  4. GABAPENTIN [Concomitant]
     Active Substance: GABAPENTIN
     Indication: Prophylaxis
     Dosage: 100MG X 3 A DAY
     Route: 048
     Dates: start: 2021
  5. ORPHENADRINE [Concomitant]
     Active Substance: ORPHENADRINE
     Indication: Pain
     Dosage: 00MG X 2 A DAY AS NEEDED
     Route: 048
     Dates: start: 2021
  6. DICLOFENAC [Concomitant]
     Active Substance: DICLOFENAC
     Indication: Pain
     Dosage: 50MG X 2 A DAY AS NEEDED
     Route: 048
     Dates: start: 2021

REACTIONS (3)
  - Dyspnoea [Recovering/Resolving]
  - Drug ineffective [Recovering/Resolving]
  - Cough [Recovering/Resolving]

NARRATIVE: CASE EVENT DATE: 20240428
